FAERS Safety Report 24044337 (Version 1)
Quarter: 2024Q3

REPORT INFORMATION
  Report Type: Report from Study
  Country: US (occurrence: US)
  Receive Date: 20240703
  Receipt Date: 20240703
  Transmission Date: 20241016
  Serious: Yes (Hospitalization)
  Sender: TAKEDA
  Company Number: US-TAKEDA-2023TUS087597

PATIENT
  Age: 4 Year
  Sex: Female

DRUGS (5)
  1. LANADELUMAB [Suspect]
     Active Substance: LANADELUMAB
     Indication: Immune system disorder
     Dosage: 150 MILLIGRAM, Q4WEEKS
     Route: 058
     Dates: start: 202307
  2. LANADELUMAB [Suspect]
     Active Substance: LANADELUMAB
     Dosage: 150 MILLIGRAM, Q2WEEKS
     Route: 058
  3. LANADELUMAB [Suspect]
     Active Substance: LANADELUMAB
     Dosage: 75 MILLIGRAM, Q2WEEKS
     Route: 058
  4. LANADELUMAB [Suspect]
     Active Substance: LANADELUMAB
     Dosage: 150 MILLIGRAM, Q2WEEKS
     Route: 058
  5. LANADELUMAB [Suspect]
     Active Substance: LANADELUMAB
     Dosage: 75 MILLIGRAM, Q2WEEKS
     Route: 058

REACTIONS (30)
  - Upper limb fracture [Unknown]
  - Mood altered [Not Recovered/Not Resolved]
  - Pain in extremity [Not Recovered/Not Resolved]
  - Abdominal pain upper [Unknown]
  - Injection site urticaria [Unknown]
  - Agitation [Not Recovered/Not Resolved]
  - Mood swings [Not Recovered/Not Resolved]
  - Decreased appetite [Unknown]
  - Vomiting [Unknown]
  - Weight increased [Unknown]
  - Cough [Unknown]
  - Rhinorrhoea [Unknown]
  - Skin papilloma [Unknown]
  - Nausea [Recovered/Resolved]
  - Poor quality sleep [Not Recovered/Not Resolved]
  - Eye contusion [Not Recovered/Not Resolved]
  - Periorbital swelling [Recovered/Resolved]
  - Swelling face [Recovered/Resolved]
  - Insomnia [Unknown]
  - Sinus disorder [Unknown]
  - Restless legs syndrome [Not Recovered/Not Resolved]
  - Fatigue [Not Recovered/Not Resolved]
  - Lethargy [Not Recovered/Not Resolved]
  - Dyspnoea [Unknown]
  - Rash [Not Recovered/Not Resolved]
  - Hereditary angioedema [Recovered/Resolved]
  - Injection site erythema [Not Recovered/Not Resolved]
  - Injection site bruising [Unknown]
  - Injection site haemorrhage [Unknown]
  - Injection site swelling [Unknown]

NARRATIVE: CASE EVENT DATE: 20230701
